FAERS Safety Report 4467335-8 (Version None)
Quarter: 2004Q4

REPORT INFORMATION
  Report Type: 
  Country: None (occurrence: None)
  Receive Date: 20041006
  Receipt Date: 20040929
  Transmission Date: 20050328
  Serious: Yes (Life-Threatening, Hospitalization, Other)
  Sender: FDA-Public Use
  Company Number: GB-BRISTOL-MYERS SQUIBB COMPANY-12719142

PATIENT
  Age: 71 Year
  Sex: Male

DRUGS (1)
  1. PRAVASTATIN [Suspect]
     Route: 048
     Dates: start: 19920901, end: 20000601

REACTIONS (6)
  - AMNESIA [None]
  - ANOSMIA [None]
  - ASTHENIA [None]
  - DEPRESSION [None]
  - PLATELET COUNT DECREASED [None]
  - SUICIDE ATTEMPT [None]
